FAERS Safety Report 5595237-2 (Version None)
Quarter: 2008Q1

REPORT INFORMATION
  Report Type: 
  Country: None (occurrence: None)
  Receive Date: 20080117
  Receipt Date: 20080110
  Transmission Date: 20080703
  Serious: Yes (Death, Hospitalization, Other)
  Sender: FDA-Public Use
  Company Number: US-PFIZER INC-2007094917

PATIENT
  Sex: Female
  Weight: 57.2 kg

DRUGS (2)
  1. CELEBREX [Suspect]
     Indication: ARTHRITIS
     Route: 048
  2. CELEBREX [Suspect]
     Indication: PAIN

REACTIONS (5)
  - AMNESIA [None]
  - CAROTID ARTERY STENOSIS [None]
  - DEATH [None]
  - DEPRESSION [None]
  - ISCHAEMIC STROKE [None]
